FAERS Safety Report 22138648 (Version 1)
Quarter: 2023Q1

REPORT INFORMATION
  Report Type: Other
  Country: GB (occurrence: GB)
  Receive Date: 20230326
  Receipt Date: 20230326
  Transmission Date: 20230418
  Serious: Yes (Other)
  Sender: FDA-Public Use
  Company Number: GB-CELLTRION INC.-2023GB006034

PATIENT

DRUGS (25)
  1. RITUXIMAB [Suspect]
     Active Substance: RITUXIMAB
     Indication: Diffuse large B-cell lymphoma
     Dosage: FIRST LINE OF TREATMENT (R-CHOP)
     Route: 041
     Dates: start: 20211101, end: 20220201
  2. RITUXIMAB [Suspect]
     Active Substance: RITUXIMAB
     Dosage: FIRST LINE OF TREATMENT (R-CHOP)
     Route: 041
     Dates: start: 20211101, end: 20220201
  3. RITUXIMAB [Suspect]
     Active Substance: RITUXIMAB
     Dosage: FIRST LINE OF TREATMENT (R-CHOP)
     Route: 041
     Dates: start: 20211101, end: 20220201
  4. RITUXIMAB [Suspect]
     Active Substance: RITUXIMAB
     Dosage: 2ND LINE OF TREATMENT
     Route: 041
     Dates: start: 20220801, end: 20221001
  5. RITUXIMAB [Suspect]
     Active Substance: RITUXIMAB
     Dosage: 2ND LINE OF TREATMENT
     Route: 041
     Dates: start: 20220801, end: 20221001
  6. RITUXIMAB [Suspect]
     Active Substance: RITUXIMAB
     Dosage: 2ND LINE OF TREATMENT
     Route: 041
     Dates: start: 20220801, end: 20221001
  7. RITUXIMAB [Suspect]
     Active Substance: RITUXIMAB
     Dosage: 4TH LINE OF TREATMENT (POLA-BR)
     Route: 041
     Dates: start: 20230201, end: 20230201
  8. RITUXIMAB [Suspect]
     Active Substance: RITUXIMAB
     Dosage: 4TH LINE OF TREATMENT (POLA-BR)
     Route: 041
     Dates: start: 20230201, end: 20230201
  9. RITUXIMAB [Suspect]
     Active Substance: RITUXIMAB
     Dosage: 4TH LINE OF TREATMENT (POLA-BR)
     Route: 041
     Dates: start: 20230201, end: 20230201
  10. ETOPOSIDE [Suspect]
     Active Substance: ETOPOSIDE
     Indication: Diffuse large B-cell lymphoma
     Dosage: UNK
     Dates: start: 20221101, end: 20221101
  11. ETOPOSIDE [Suspect]
     Active Substance: ETOPOSIDE
     Dosage: UNK
     Dates: start: 20221101, end: 20221101
  12. ETOPOSIDE [Suspect]
     Active Substance: ETOPOSIDE
     Dosage: SECOND LINE OF TREATMENT
     Dates: start: 20220801, end: 20221001
  13. ETOPOSIDE [Suspect]
     Active Substance: ETOPOSIDE
     Dosage: SECOND LINE OF TREATMENT
     Dates: start: 20220801, end: 20221001
  14. ETOPOSIDE [Suspect]
     Active Substance: ETOPOSIDE
     Dosage: THIRD LINE TREATMENT (BEAM-AUTO)
     Dates: start: 20221101
  15. CYCLOPHOSPHAMIDE [Suspect]
     Active Substance: CYCLOPHOSPHAMIDE
     Indication: Diffuse large B-cell lymphoma
     Dosage: FIRST LINE OF TREATMENT R- CHOP
     Dates: start: 20211101, end: 20220201
  16. DOXORUBICIN HYDROCHLORIDE [Suspect]
     Active Substance: DOXORUBICIN HYDROCHLORIDE
     Indication: Diffuse large B-cell lymphoma
     Dosage: FIRST LINE OF TREATMENT R- CHOP
     Dates: start: 20211101, end: 20220201
  17. PREDNISONE [Suspect]
     Active Substance: PREDNISONE
     Indication: Diffuse large B-cell lymphoma
     Dosage: FIRST LINE OF TREATMENT R- CHOP
     Dates: start: 20211101, end: 20220201
  18. VINCRISTINE [Suspect]
     Active Substance: VINCRISTINE
     Indication: Diffuse large B-cell lymphoma
     Dosage: FIRST LINE OF TREATMENT R- CHOP
     Dates: start: 20211101, end: 20220201
  19. IFOSFAMIDE [Suspect]
     Active Substance: IFOSFAMIDE
     Indication: Diffuse large B-cell lymphoma
     Dosage: SECOND LINE OF TREATMENT
     Dates: start: 20220801, end: 20221001
  20. CARBOPLATIN [Suspect]
     Active Substance: CARBOPLATIN
     Indication: Diffuse large B-cell lymphoma
     Dosage: SECOND LINE OF TREATMENT
     Dates: start: 20220801, end: 20221001
  21. CARMUSTINE [Suspect]
     Active Substance: CARMUSTINE
     Indication: Diffuse large B-cell lymphoma
     Dosage: THIRD LINE TREATMENT (BEAM-AUTO)
     Dates: start: 20221101, end: 20221101
  22. CYTARABINE [Suspect]
     Active Substance: CYTARABINE
     Indication: Diffuse large B-cell lymphoma
     Dosage: THIRD LINE TREATMENT (BEAM-AUTO)
     Dates: start: 20221101, end: 20221101
  23. MELPHALAN [Suspect]
     Active Substance: MELPHALAN
     Indication: Diffuse large B-cell lymphoma
     Dosage: THIRD LINE TREATMENT (BEAM-AUTO)
     Dates: start: 20221101, end: 20221101
  24. BENDAMUSTINE [Suspect]
     Active Substance: BENDAMUSTINE
     Indication: Diffuse large B-cell lymphoma
     Dosage: FOURTH LINE TREATMENT (POLA-BR)
     Dates: start: 20230201, end: 20230201
  25. POLATUZUMAB VEDOTIN [Suspect]
     Active Substance: POLATUZUMAB VEDOTIN
     Indication: Diffuse large B-cell lymphoma
     Dosage: FOURTH LINE TREATMENT (POLA-BR)
     Dates: start: 20230201, end: 20230201

REACTIONS (3)
  - Disease progression [Unknown]
  - Drug ineffective [Unknown]
  - Product use issue [Unknown]
